FAERS Safety Report 8459613-2 (Version None)
Quarter: 2012Q2

REPORT INFORMATION
  Report Type: 
  Country: None (occurrence: None)
  Receive Date: 20120622
  Receipt Date: 20120615
  Transmission Date: 20120825
  Serious: Yes (Death)
  Sender: FDA-Public Use
  Company Number: US-GLAXOSMITHKLINE-A0979327A

PATIENT
  Age: 80 Year
  Sex: Male

DRUGS (8)
  1. AMBIEN [Concomitant]
  2. MS CONTIN [Concomitant]
  3. PROAIR HFA [Concomitant]
  4. OMEPRAZOLE [Concomitant]
  5. FOSAMAX [Concomitant]
  6. MEGACE [Concomitant]
  7. ADVAIR DISKUS 100/50 [Suspect]
     Indication: CHRONIC OBSTRUCTIVE PULMONARY DISEASE
     Route: 055
  8. PROVENTIL [Concomitant]

REACTIONS (5)
  - BEDRIDDEN [None]
  - DEATH [None]
  - PNEUMONIA [None]
  - FRACTURE [None]
  - ASTHENIA [None]
